FAERS Safety Report 7539833-1 (Version None)
Quarter: 2011Q2

REPORT INFORMATION
  Report Type: 
  Country: None (occurrence: None)
  Receive Date: 20110609
  Receipt Date: 20110609
  Transmission Date: 20111010
  Serious: Yes (Other)
  Sender: FDA-Public Use
  Company Number: None

PATIENT
  Age: 69 Year
  Sex: Female
  Weight: 45.3597 kg

DRUGS (1)
  1. FLUTICASONE PROPIONATE [Suspect]
     Indication: SWELLING
     Dosage: ONE SPRAY DAILY NASAL
     Route: 045
     Dates: start: 20110507, end: 20110520

REACTIONS (2)
  - INSOMNIA [None]
  - MUSCLE SPASMS [None]
